FAERS Safety Report 18479828 (Version 1)
Quarter: 2020Q4

REPORT INFORMATION
  Report Type: Spontaneous
  Country: US (occurrence: US)
  Receive Date: 20201109
  Receipt Date: 20201109
  Transmission Date: 20210114
  Serious: Yes (Hospitalization, Other)
  Sender: FDA-Public Use
  Company Number: US-AMGEN-USASP2020180434

PATIENT
  Age: 37 Year
  Sex: Male

DRUGS (1)
  1. BLINCYTO [Suspect]
     Active Substance: BLINATUMOMAB
     Indication: ACUTE LYMPHOCYTIC LEUKAEMIA
     Dosage: 70 MICROGRAM, 2 X 35 MCG VIALS
     Route: 065
     Dates: start: 20201019

REACTIONS (2)
  - Renal impairment [Unknown]
  - Unevaluable event [Unknown]
